FAERS Safety Report 23040044 (Version 1)
Quarter: 2023Q4

REPORT INFORMATION
  Report Type: Spontaneous
  Country: PT (occurrence: PT)
  Receive Date: 20231006
  Receipt Date: 20231006
  Transmission Date: 20240109
  Serious: Yes (Other)
  Sender: FDA-Public Use
  Company Number: PT-ASTELLAS-2023US028576

PATIENT
  Age: 65 Year
  Sex: Male
  Weight: 87 kg

DRUGS (5)
  1. ZOLEDRONIC ACID [Suspect]
     Active Substance: ZOLEDRONIC ACID
     Indication: Product used for unknown indication
     Dosage: UNK UNK, CYCLIC (28/28 DAYS)
     Route: 065
  2. ENFORTUMAB VEDOTIN [Suspect]
     Active Substance: ENFORTUMAB VEDOTIN
     Indication: Product used for unknown indication
     Dosage: 1 MG/KG, UNKNOWN FREQ.??THERAPY START DATE--FEB-2023
     Route: 065
  3. ENFORTUMAB VEDOTIN [Suspect]
     Active Substance: ENFORTUMAB VEDOTIN
     Dosage: 0.75 MG/KG, UNKNOWN FREQ.
     Route: 065
     Dates: start: 202307
  4. ENFORTUMAB VEDOTIN [Suspect]
     Active Substance: ENFORTUMAB VEDOTIN
     Dosage: 0.75 MG/KG, CYCLIC (SCHEDULE TO DAY 1 AND DAY 8 OF A 28 DAYS CYCLE)
     Route: 065
  5. ENFORTUMAB VEDOTIN [Suspect]
     Active Substance: ENFORTUMAB VEDOTIN
     Dosage: 1.25 MG/KG, CYCLIC (D1, D8 AND D15, EVERY 28/28 DAYS)
     Route: 065

REACTIONS (9)
  - Neuropathy peripheral [None]
  - Metastases to liver [None]
  - Malignant neoplasm progression [None]
  - Alopecia [None]
  - Back pain [None]
  - Weight decreased [None]
  - Decreased appetite [None]
  - Anaemia [None]
  - Wrong technique in product usage process [None]

NARRATIVE: CASE EVENT DATE: 20221101
